FAERS Safety Report 7135064-8 (Version None)
Quarter: 2010Q4

REPORT INFORMATION
  Report Type: 
  Country: None (occurrence: None)
  Receive Date: 20101203
  Receipt Date: 20100428
  Transmission Date: 20110411
  Serious: Yes (Other)
  Sender: FDA-Public Use
  Company Number: US-BRISTOL-MYERS SQUIBB COMPANY-15069123

PATIENT
  Sex: Male

DRUGS (2)
  1. VIDEX [Suspect]
     Indication: HIV INFECTION
     Dates: start: 19891201
  2. ZIDOVUDINE [Suspect]
     Indication: HIV INFECTION

REACTIONS (1)
  - PORTAL HYPERTENSION [None]
